FAERS Safety Report 8086436-9 (Version None)
Quarter: 2012Q1

REPORT INFORMATION
  Report Type: 
  Country: None (occurrence: None)
  Receive Date: 20120128
  Receipt Date: 20110511
  Transmission Date: 20120608
  Serious: No
  Sender: FDA-Public Use
  Company Number: US-ABBOTT-11P-163-0724920-00

PATIENT
  Age: 49 Year
  Sex: Female

DRUGS (4)
  1. METHOTREXATE [Concomitant]
     Indication: RHEUMATOID ARTHRITIS
     Dosage: 2.5MG-8TABS WEEKLY
     Route: 048
  2. INSULIN [Concomitant]
     Indication: HYPERGLYCAEMIA
     Dosage: PRN
  3. VIMOVO [Concomitant]
     Indication: RHEUMATOID ARTHRITIS
     Dosage: 500/20MG BID
     Route: 048
  4. HUMIRA [Suspect]
     Indication: RHEUMATOID ARTHRITIS
     Dates: start: 20110401

REACTIONS (5)
  - WRONG TECHNIQUE IN DRUG USAGE PROCESS [None]
  - INJECTION SITE PAIN [None]
  - INJURY [None]
  - INCORRECT DOSE ADMINISTERED [None]
  - PAIN [None]
